FAERS Safety Report 4739324-7 (Version None)
Quarter: 2005Q3

REPORT INFORMATION
  Report Type: 
  Country: None (occurrence: None)
  Receive Date: 20050810
  Receipt Date: 20050120
  Transmission Date: 20060218
  Serious: No
  Sender: FDA-Public Use
  Company Number: US-GLAXOSMITHKLINE-A0541542A

PATIENT
  Age: 77 Year
  Sex: Female

DRUGS (7)
  1. PAXIL [Suspect]
     Indication: DEPRESSION
     Dosage: 20MG PER DAY
     Route: 048
     Dates: start: 20041201
  2. ADVAIR DISKUS 100/50 [Concomitant]
  3. ASCORBIC ACID [Concomitant]
  4. MAXZIDE [Concomitant]
  5. ALLEGRA [Concomitant]
  6. CLARITIN [Concomitant]
  7. CRESTOR [Concomitant]

REACTIONS (1)
  - ALOPECIA [None]
